FAERS Safety Report 10233829 (Version 2)
Quarter: 2014Q2

REPORT INFORMATION
  Report Type: Spontaneous
  Country: FR (occurrence: FR)
  Receive Date: 20140612
  Receipt Date: 20140627
  Transmission Date: 20141212
  Serious: Yes (Hospitalization)
  Sender: FDA-Public Use
  Company Number: FR-B.I. PHARMACEUTICALS,INC./RIDGEFIELD-2014-BI-25674FF

PATIENT
  Age: 85 Year
  Sex: Male

DRUGS (8)
  1. PRADAXA [Suspect]
     Indication: ATRIAL FIBRILLATION
     Dosage: 220 MG
     Route: 048
     Dates: start: 20130206, end: 20131105
  2. PRADAXA [Suspect]
     Dosage: 220 MG
     Route: 048
     Dates: start: 20140331, end: 20140419
  3. CORTANCYL [Concomitant]
     Dosage: 6 MG
     Route: 065
  4. PERINDOPRIL [Concomitant]
     Dosage: 4 MG
     Route: 065
  5. PRAVASTATINE [Concomitant]
     Dosage: 20 MG
     Route: 065
  6. INEXIUM [Concomitant]
     Route: 065
  7. IMOVANE [Concomitant]
     Dosage: 0.5 NR
     Route: 065
  8. GAVISCON [Concomitant]
     Route: 065

REACTIONS (2)
  - Hypochromic anaemia [Not Recovered/Not Resolved]
  - Haematochezia [Recovered/Resolved]
